FAERS Safety Report 10546671 (Version 1)
Quarter: 2014Q4

REPORT INFORMATION
  Report Type: Spontaneous
  Country: IT (occurrence: IT)
  Receive Date: 20141027
  Receipt Date: 20141027
  Transmission Date: 20150529
  Serious: Yes (Other)
  Sender: FDA-Public Use
  Company Number: IT-GE HEALTHCARE MEDICAL DIAGNOSTICS-OMPQ-PR-1410S-1296

PATIENT
  Age: 11 Year
  Sex: Male

DRUGS (2)
  1. OMNIPAQUE [Suspect]
     Active Substance: IOHEXOL
     Indication: HODGKIN^S DISEASE
     Dosage: DOSE NOT REPORTED
     Route: 042
     Dates: start: 20140804, end: 20140804
  2. OMNIPAQUE [Suspect]
     Active Substance: IOHEXOL
     Indication: DIAGNOSTIC PROCEDURE

REACTIONS (7)
  - Nasal obstruction [Recovered/Resolved]
  - Exophthalmos [Recovered/Resolved]
  - Throat tightness [Recovered/Resolved]
  - Rash erythematous [Recovered/Resolved]
  - Abdominal distension [Recovered/Resolved]
  - Sneezing [Recovered/Resolved]
  - Lacrimation increased [Recovered/Resolved]

NARRATIVE: CASE EVENT DATE: 20140804
